FAERS Safety Report 8393231-X (Version None)
Quarter: 2012Q2

REPORT INFORMATION
  Report Type: 
  Country: None (occurrence: None)
  Receive Date: 20120529
  Receipt Date: 20120521
  Transmission Date: 20120825
  Serious: No
  Sender: FDA-Public Use
  Company Number: US-ABBOTT-12P-163-0938390-00

PATIENT
  Age: 53 Year
  Sex: Male
  Weight: 145.28 kg

DRUGS (10)
  1. INDOCIN [Suspect]
     Indication: MUSCULOSKELETAL PAIN
     Dates: start: 20120401
  2. CYCLOBENAZPRINE [Suspect]
     Indication: NECK PAIN
  3. RELAFEN [Suspect]
     Indication: NECK PAIN
  4. UNKNOWN ANTIBIOTIC [Concomitant]
     Indication: NASAL CONGESTION
  5. ANDROGEL [Suspect]
     Indication: BLOOD TESTOSTERONE DECREASED
     Dosage: 2 PUMPS PER DAY
     Dates: start: 20120401
  6. INDOCIN [Suspect]
     Indication: NECK PAIN
  7. SYMBICORT [Suspect]
     Indication: SLEEP APNOEA SYNDROME
     Dates: start: 20120401
  8. UNKNOWN ANTIBIOTIC [Concomitant]
     Indication: COUGH
     Dates: start: 20120401, end: 20120401
  9. CYCLOBENAZPRINE [Suspect]
     Indication: MUSCULOSKELETAL PAIN
     Dates: start: 20120401
  10. RELAFEN [Suspect]
     Indication: MUSCULOSKELETAL PAIN
     Dates: start: 20120401

REACTIONS (6)
  - INJURY [None]
  - DRUG INEFFECTIVE [None]
  - HYPERHIDROSIS [None]
  - BLOOD TESTOSTERONE DECREASED [None]
  - NECK PAIN [None]
  - BACK PAIN [None]
